FAERS Safety Report 12717256 (Version 1)
Quarter: 2016Q3

REPORT INFORMATION
  Report Type: Spontaneous
  Country: US (occurrence: US)
  Receive Date: 20160906
  Receipt Date: 20160906
  Transmission Date: 20161109
  Serious: Yes (Other)
  Sender: FDA-Public Use
  Company Number: US-EMD SERONO-8104700

PATIENT
  Age: 48 Year

DRUGS (1)
  1. REBIF [Suspect]
     Active Substance: INTERFERON BETA-1A
     Indication: MULTIPLE SCLEROSIS

REACTIONS (7)
  - Autoimmune thyroiditis [Unknown]
  - Hypoaesthesia [Unknown]
  - Memory impairment [Unknown]
  - Anxiety [Unknown]
  - Temperature intolerance [Unknown]
  - Unevaluable event [Unknown]
  - Fatigue [Unknown]
